FAERS Safety Report 6220049-6 (Version None)
Quarter: 2009Q2

REPORT INFORMATION
  Report Type: 
  Country: None (occurrence: None)
  Receive Date: 20090609
  Receipt Date: 20090528
  Transmission Date: 20091009
  Serious: Yes (Hospitalization)
  Sender: FDA-Public Use
  Company Number: PHHY2009ES20667

PATIENT
  Age: 91 Year
  Sex: Female

DRUGS (4)
  1. DIOVAN HCT [Suspect]
     Indication: HYPERTENSION
     Dosage: 1 TABLET DAILY
     Route: 048
     Dates: end: 20090118
  2. SUTRIL [Interacting]
     Indication: THROMBOSIS PROPHYLAXIS
  3. TROMALYT [Interacting]
     Indication: HYPERTENSION
     Dosage: 150 MG/DAY
     Route: 048
  4. PREDNISONE [Interacting]
     Indication: TEMPORAL ARTERITIS
     Dosage: 2.5MG DAILY
     Route: 048

REACTIONS (10)
  - ASTHENIA [None]
  - BLOOD PH DECREASED [None]
  - COUGH [None]
  - DEPRESSED LEVEL OF CONSCIOUSNESS [None]
  - DRUG INTERACTION [None]
  - DYSPNOEA [None]
  - HYPERKALAEMIA [None]
  - KLEBSIELLA INFECTION [None]
  - PYREXIA [None]
  - RENAL FAILURE ACUTE [None]
